FAERS Safety Report 8494988-X (Version None)
Quarter: 2012Q2

REPORT INFORMATION
  Report Type: 
  Country: None (occurrence: None)
  Receive Date: 20120627
  Receipt Date: 20120618
  Transmission Date: 20120825
  Serious: Yes (Hospitalization, Other)
  Sender: FDA-Public Use
  Company Number: 2012SP033709

PATIENT
  Sex: Female

DRUGS (3)
  1. RIBAVIRIN [Suspect]
     Indication: HEPATITIS C
     Dates: start: 20120106
  2. PEGASYS [Suspect]
     Indication: HEPATITIS C
     Dosage: 180 MCG;UNK;UNK, 135 MCG;UNK;UNK
     Dates: start: 20120106
  3. VICTRELIS [Suspect]
     Indication: HEPATITIS C
     Dates: start: 20120204

REACTIONS (4)
  - WHITE BLOOD CELL COUNT DECREASED [None]
  - STRESS [None]
  - RED BLOOD CELL COUNT DECREASED [None]
  - ANXIETY [None]
